FAERS Safety Report 25427932 (Version 1)
Quarter: 2025Q2

REPORT INFORMATION
  Report Type: Spontaneous
  Country: US (occurrence: US)
  Receive Date: 20250612
  Receipt Date: 20250612
  Transmission Date: 20250717
  Serious: Yes (Disabling)
  Sender: BAYER HEALTHCARE PHARMACEUTICALS INC.
  Company Number: US-BAYER-2025A073741

PATIENT
  Age: 39 Year
  Sex: Female

DRUGS (1)
  1. MIRENA [Suspect]
     Active Substance: LEVONORGESTREL
     Indication: Contraception
     Dosage: 20?G/DAY
     Route: 015
     Dates: start: 20180213, end: 2019

REACTIONS (6)
  - Infertility [None]
  - Premature menopause [None]
  - Joint swelling [None]
  - Loss of personal independence in daily activities [None]
  - Anxiety [None]
  - Illness [None]

NARRATIVE: CASE EVENT DATE: 20180101
